FAERS Safety Report 21799912 (Version 1)
Quarter: 2022Q4

REPORT INFORMATION
  Report Type: Spontaneous
  Country: US (occurrence: US)
  Receive Date: 20221230
  Receipt Date: 20221230
  Transmission Date: 20230113
  Serious: Yes (Other)
  Sender: FDA-Public Use
  Company Number: US-GLAXOSMITHKLINE-US2022GSK193313

PATIENT

DRUGS (3)
  1. BUPROPION HYDROCHLORIDE XL [Suspect]
     Active Substance: BUPROPION HYDROCHLORIDE
     Indication: Major depression
     Dosage: 300 MG, 1D
  2. BUPROPION HYDROCHLORIDE [Suspect]
     Active Substance: BUPROPION HYDROCHLORIDE
     Indication: Major depression
     Dosage: 100 MG, TID
  3. VORTIOXETINE [Concomitant]
     Active Substance: VORTIOXETINE
     Indication: Major depression
     Dosage: 15 MG, QD

REACTIONS (2)
  - Drug level increased [Unknown]
  - Renal impairment [Unknown]
